FAERS Safety Report 5310299-5 (Version None)
Quarter: 2007Q2

REPORT INFORMATION
  Report Type: 
  Country: None (occurrence: None)
  Receive Date: 20070427
  Receipt Date: 20070312
  Transmission Date: 20071010
  Serious: Yes (Hospitalization)
  Sender: FDA-Public Use
  Company Number: US-SANOFI-SYNTHELABO-A03200702241

PATIENT
  Sex: Female

DRUGS (1)
  1. AMBIEN [Suspect]
     Indication: INSOMNIA
     Dosage: 5 TO 10 MG AS NEEDED UNK
     Route: 048
     Dates: start: 20041201, end: 20050626

REACTIONS (13)
  - AMNESIA [None]
  - CONFUSIONAL STATE [None]
  - FALL [None]
  - FEELING HOT [None]
  - FEMUR FRACTURE [None]
  - HUMERUS FRACTURE [None]
  - MOBILITY DECREASED [None]
  - NERVE INJURY [None]
  - RADIUS FRACTURE [None]
  - SLEEP TALKING [None]
  - SLEEP WALKING [None]
  - ULNA FRACTURE [None]
  - URINARY BLADDER RUPTURE [None]
